FAERS Safety Report 25167269 (Version 4)
Quarter: 2025Q2

REPORT INFORMATION
  Report Type: Spontaneous
  Country: US (occurrence: US)
  Receive Date: 20250407
  Receipt Date: 20250523
  Transmission Date: 20250717
  Serious: Yes (Hospitalization, Other)
  Sender: SANOFI AVENTIS
  Company Number: US-SA-2025SA097780

PATIENT
  Age: 61 Year
  Sex: Male

DRUGS (3)
  1. DUPIXENT [Suspect]
     Active Substance: DUPILUMAB
     Indication: Dermatitis atopic
     Dates: start: 202502, end: 202502
  2. DUPIXENT [Suspect]
     Active Substance: DUPILUMAB
     Dosage: 300 MG, QOW
     Dates: start: 2025
  3. ALFUZOSIN HYDROCHLORIDE [Concomitant]
     Active Substance: ALFUZOSIN HYDROCHLORIDE

REACTIONS (3)
  - Hepatitis [Unknown]
  - Pancreatitis [Unknown]
  - Rash erythematous [Unknown]

NARRATIVE: CASE EVENT DATE: 20250101
